FAERS Safety Report 10004027 (Version 2)
Quarter: 2014Q1

REPORT INFORMATION
  Report Type: Report from Study
  Country: NL (occurrence: NL)
  Receive Date: 20140312
  Receipt Date: 20140326
  Transmission Date: 20141002
  Serious: Yes (Death, Other)
  Sender: FDA-Public Use
  Company Number: PHHY2014NL029860

PATIENT
  Sex: Female

DRUGS (3)
  1. ACLASTA [Suspect]
     Indication: OSTEOPOROSIS
     Dosage: 5 MG, PER YEAR
     Route: 042
     Dates: start: 20120427
  2. ACLASTA [Suspect]
     Dosage: 4 MG/100ML (ONCE EVERY 52 WEEKS)
     Route: 042
     Dates: start: 20130507
  3. CALCICHEW D3 [Concomitant]
     Dosage: UNK

REACTIONS (4)
  - Death [Fatal]
  - Thrombosis [Unknown]
  - Crohn^s disease [Unknown]
  - Underdose [Unknown]
